FAERS Safety Report 9016767 (Version 1)
Quarter: 2013Q1

REPORT INFORMATION
  Report Type: Spontaneous
  Country: US (occurrence: US)
  Receive Date: 20130116
  Receipt Date: 20130116
  Transmission Date: 20140127
  Serious: Yes (Death, Other)
  Sender: FDA-Public Use
  Company Number: US-009507513-1301USA002572

PATIENT
  Age: 54 Year
  Sex: Female

DRUGS (9)
  1. SINGULAIR [Suspect]
  2. FENOFIBRATE [Suspect]
  3. DULOXETINE HYDROCHLORIDE [Suspect]
  4. FLUOXETINE [Suspect]
  5. TRAZODONE HYDROCHLORIDE [Suspect]
  6. CITALOPRAM HYDROBROMIDE [Suspect]
  7. FIORICET [Suspect]
  8. FLURAZEPAM [Suspect]
  9. DOXEPIN HYDROCHLORIDE [Suspect]

REACTIONS (1)
  - Cardio-respiratory arrest [Fatal]
